FAERS Safety Report 15626849 (Version 1)
Quarter: 2018Q4

REPORT INFORMATION
  Report Type: Spontaneous
  Country: DE (occurrence: DE)
  Receive Date: 20181116
  Receipt Date: 20181116
  Transmission Date: 20190205
  Serious: Yes (Hospitalization, Other)
  Sender: FDA-Public Use
  Company Number: DE-PFIZER INC-2018464724

PATIENT
  Age: 63 Year
  Sex: Male

DRUGS (7)
  1. DALTEPARIN SODIUM [Suspect]
     Active Substance: DALTEPARIN SODIUM
     Indication: THROMBOSIS PROPHYLAXIS
     Dosage: 2500 IU, QD
     Route: 065
  2. BASILIXIMAB [Suspect]
     Active Substance: BASILIXIMAB
     Indication: RENAL TRANSPLANT
     Dosage: UNK
     Route: 065
  3. CICLOSPORIN [Suspect]
     Active Substance: CYCLOSPORINE
     Indication: RENAL TRANSPLANT
     Dosage: UNK
     Route: 065
  4. PREDNISONE. [Concomitant]
     Active Substance: PREDNISONE
     Indication: RENAL TRANSPLANT
     Dosage: UNK
     Route: 065
  5. ENALAPRIL [Concomitant]
     Active Substance: ENALAPRIL
     Dosage: 10 MG, BID
     Route: 065
  6. NADROPARIN [Suspect]
     Active Substance: NADROPARIN
     Indication: DEEP VEIN THROMBOSIS
     Dosage: 6650 IU, BID
     Route: 065
  7. MYCOPHENOLATE MOFETIL. [Concomitant]
     Active Substance: MYCOPHENOLATE MOFETIL
     Indication: RENAL TRANSPLANT
     Dosage: UNK
     Route: 065

REACTIONS (11)
  - IgA nephropathy [Recovering/Resolving]
  - Kidney transplant rejection [Recovered/Resolved]
  - Proteinuria [Recovering/Resolving]
  - Gastrointestinal haemorrhage [Unknown]
  - Nephrotic syndrome [Recovering/Resolving]
  - Glomerulosclerosis [Recovering/Resolving]
  - Deep vein thrombosis [Unknown]
  - Thrombophlebitis [Unknown]
  - Disease recurrence [Recovering/Resolving]
  - Urine output decreased [Recovered/Resolved]
  - Transplant rejection [Unknown]
